FAERS Safety Report 12878281 (Version 4)
Quarter: 2019Q1

REPORT INFORMATION
  Report Type: Report from Study
  Country: CA (occurrence: CA)
  Receive Date: 20161024
  Receipt Date: 20190129
  Transmission Date: 20190417
  Serious: Yes (Hospitalization, Other)
  Sender: FDA-Public Use
  Company Number: CA-PFIZER INC-2016490199

PATIENT
  Age: 31 Year
  Sex: Male
  Weight: 66 kg

DRUGS (19)
  1. ENTYVIO [Suspect]
     Active Substance: VEDOLIZUMAB
     Indication: CROHN^S DISEASE
     Dosage: 300 MG, UNK
     Route: 042
     Dates: start: 20160708
  2. GABAPENTIN. [Concomitant]
     Active Substance: GABAPENTIN
     Indication: MUSCLE SPASMS
  3. VITAMIN B12 [Concomitant]
     Active Substance: CYANOCOBALAMIN
     Dosage: 1200 ?G, UNK
  4. CALCIUM WITH VITAMIN D3 /00944201/ [Concomitant]
     Dosage: UNK, BID
  5. VENLAFAXINE XR [Concomitant]
     Active Substance: VENLAFAXINE HYDROCHLORIDE
     Dosage: 150 MG, QD
  6. GABAPENTIN. [Concomitant]
     Active Substance: GABAPENTIN
     Indication: PAIN
     Dosage: 300 MG, BID
  7. CYANOCOBALAMIN. [Concomitant]
     Active Substance: CYANOCOBALAMIN
     Dosage: 1 MG/ML, MONTHLY
  8. VITAMIN E /00110501/ [Concomitant]
     Active Substance: TOCOPHEROL
     Dosage: 400 IU, UNK
  9. BUSCOPAN [Concomitant]
     Active Substance: BUTYLSCOPOLAMINE BROMIDE
     Dosage: 10 MILLIGRAM
     Dates: start: 2011
  10. VITAMIN D3 [Concomitant]
     Active Substance: CHOLECALCIFEROL
     Dosage: 1000 IU, UNK
  11. SUPEUDOL [Concomitant]
     Active Substance: OXYCODONE HYDROCHLORIDE
     Dosage: 10 MILLIGRAM
     Dates: start: 2016
  12. COENZYME Q10 [Concomitant]
     Active Substance: UBIDECARENONE
     Dosage: 200 MG, UNK
  13. TECTA [Suspect]
     Active Substance: PANTOPRAZOLE MAGNESIUM
     Dosage: 40 MG, BID
     Route: 065
     Dates: start: 2011
  14. APO-LORAZEPAM [Concomitant]
     Active Substance: LORAZEPAM
     Dosage: 1 MG, BID
     Route: 060
  15. METRONIDAZOLE. [Concomitant]
     Active Substance: METRONIDAZOLE
     Dosage: 250 MG, QD
     Dates: start: 20160801
  16. VITAMIN D3 [Concomitant]
     Active Substance: CHOLECALCIFEROL
     Dosage: 25 UG, UNK
  17. MIRTAZAPINE. [Concomitant]
     Active Substance: MIRTAZAPINE
     Dosage: 15 MG, QD
     Dates: start: 201409
  18. VENLAFAXINE XR [Concomitant]
     Active Substance: VENLAFAXINE HYDROCHLORIDE
     Dosage: 75 MG, QD
  19. VITAMIN B12 [Concomitant]
     Active Substance: CYANOCOBALAMIN
     Dosage: UNK, MONTHLY

REACTIONS (13)
  - Abdominal pain [Unknown]
  - Back pain [Unknown]
  - Intestinal stenosis [Unknown]
  - Malaise [Unknown]
  - Weight decreased [Unknown]
  - Volume blood decreased [Unknown]
  - Crohn^s disease [Unknown]
  - Pain [Not Recovered/Not Resolved]
  - Condition aggravated [Unknown]
  - Diarrhoea [Not Recovered/Not Resolved]
  - Road traffic accident [Unknown]
  - Intestinal obstruction [Unknown]
  - Hernia repair [Unknown]

NARRATIVE: CASE EVENT DATE: 201605
